FAERS Safety Report 6816701-1 (Version None)
Quarter: 2010Q3

REPORT INFORMATION
  Report Type: 
  Country: None (occurrence: None)
  Receive Date: 20100706
  Receipt Date: 20100624
  Transmission Date: 20110219
  Serious: Yes (Hospitalization)
  Sender: FDA-Public Use
  Company Number: US-JNJFOC-20100608332

PATIENT
  Sex: Male
  Weight: 113.4 kg

DRUGS (6)
  1. DURAGESIC-100 [Suspect]
     Indication: ABDOMINAL PAIN
     Route: 062
  2. FENTANYL-100 [Suspect]
     Indication: ABDOMINAL PAIN
     Route: 062
  3. TRAZODONE HYDROCHLORIDE [Concomitant]
     Indication: ANXIETY
     Route: 065
  4. SEROQUEL [Concomitant]
     Indication: ANXIETY
     Route: 065
  5. KLONOPIN [Concomitant]
     Indication: ANXIETY
     Route: 065
  6. CLONIDINE [Concomitant]
     Indication: HYPERTENSION
     Route: 048

REACTIONS (6)
  - ABDOMINAL WOUND DEHISCENCE [None]
  - INTESTINAL OBSTRUCTION [None]
  - MALAISE [None]
  - OSTEOMYELITIS [None]
  - ULCER [None]
  - VOMITING [None]
